FAERS Safety Report 12211385 (Version 1)
Quarter: 2016Q1

REPORT INFORMATION
  Report Type: Spontaneous
  Country: US (occurrence: US)
  Receive Date: 20160325
  Receipt Date: 20160325
  Transmission Date: 20160526
  Serious: No
  Sender: FDA-Public Use
  Company Number: CHPA2016US003780

PATIENT
  Age: 82 Year
  Sex: Male

DRUGS (1)
  1. VOLTAREN [Suspect]
     Active Substance: DICLOFENAC SODIUM
     Indication: BACK PAIN
     Dosage: SIZE OF A QUARTER, ONCE/SINGLE
     Route: 061
     Dates: start: 20160324, end: 20160324

REACTIONS (3)
  - Drug administered at inappropriate site [Unknown]
  - Expired product administered [Unknown]
  - Product use issue [Unknown]
